FAERS Safety Report 9507239 (Version 1)
Quarter: 2013Q3

REPORT INFORMATION
  Report Type: Spontaneous
  Country: US (occurrence: None)
  Receive Date: 20130904
  Receipt Date: 20130904
  Transmission Date: 20140515
  Serious: Yes (Hospitalization)
  Sender: FDA-Public Use
  Company Number: FK201303845

PATIENT
  Age: 42 Year
  Sex: Female

DRUGS (2)
  1. CISPLATIN [Suspect]
     Indication: ADENOID CYSTIC CARCINOMA
     Route: 014
  2. DOXORUBICIN [Suspect]
     Indication: ADENOID CYSTIC CARCINOMA
     Dosage: INTRAVENOUS (NOT OTHERWISE SPECIFIED)
     Route: 042

REACTIONS (5)
  - Intermittent claudication [None]
  - Facial paresis [None]
  - Cerebrovascular accident [None]
  - Ischaemia [None]
  - Toxicity to various agents [None]
